FAERS Safety Report 4694160-5 (Version None)
Quarter: 2005Q2

REPORT INFORMATION
  Report Type: 
  Country: None (occurrence: None)
  Receive Date: 20050617
  Receipt Date: 20050617
  Transmission Date: 20051028
  Serious: Yes (Death)
  Sender: FDA-Public Use
  Company Number: None

PATIENT
  Sex: Female
  Weight: 64.53 kg

DRUGS (4)
  1. DOXORUBICIN [Suspect]
     Indication: BREAST CANCER
     Dates: start: 20050331
  2. CYCLOPHOSPHAMIDE [Suspect]
  3. PACLITAXEL [Suspect]
  4. TRASTUZUMAB [Suspect]

REACTIONS (28)
  - ACTIVATED PARTIAL THROMBOPLASTIN TIME PROLONGED [None]
  - BACTERIA URINE [None]
  - BLOOD CALCIUM DECREASED [None]
  - BLOOD CULTURE POSITIVE [None]
  - BLOOD POTASSIUM DECREASED [None]
  - BLOOD PRESSURE DECREASED [None]
  - BLOOD PRESSURE SYSTOLIC INCREASED [None]
  - BLOOD SODIUM DECREASED [None]
  - BLOOD URINE [None]
  - BODY TEMPERATURE INCREASED [None]
  - CYANOSIS [None]
  - DYSPNOEA [None]
  - FIBRIN D DIMER INCREASED [None]
  - HEART RATE INCREASED [None]
  - LOSS OF CONSCIOUSNESS [None]
  - MENTAL STATUS CHANGES [None]
  - NEUTROPHIL COUNT DECREASED [None]
  - ORAL INTAKE REDUCED [None]
  - PLATELET COUNT DECREASED [None]
  - PNEUMONITIS [None]
  - PROTEINURIA [None]
  - PSEUDOMONAS INFECTION [None]
  - PUPIL FIXED [None]
  - PYREXIA [None]
  - RENAL FAILURE [None]
  - RESPIRATORY RATE DECREASED [None]
  - STOMATITIS [None]
  - WHITE BLOOD CELL COUNT DECREASED [None]
